FAERS Safety Report 7248522-2 (Version None)
Quarter: 2011Q1

REPORT INFORMATION
  Report Type: 
  Country: None (occurrence: None)
  Receive Date: 20110127
  Receipt Date: 20110124
  Transmission Date: 20110831
  Serious: Yes (Hospitalization, Disabling, Other)
  Sender: FDA-Public Use
  Company Number: US-MERCK-1004USA00576

PATIENT
  Age: 59 Year
  Sex: Female

DRUGS (2)
  1. FOSAMAX [Suspect]
     Indication: OSTEOPENIA
     Route: 048
     Dates: start: 20030626, end: 20060726
  2. BONIVA [Concomitant]
     Indication: OSTEOPENIA
     Route: 048
     Dates: start: 20060930, end: 20100106

REACTIONS (21)
  - DEVICE DEPLOYMENT ISSUE [None]
  - HAEMORRHOIDS [None]
  - BACK PAIN [None]
  - BLOOD CHOLESTEROL INCREASED [None]
  - OSTEOPOROSIS [None]
  - JAW DISORDER [None]
  - RHINITIS ALLERGIC [None]
  - INSOMNIA [None]
  - PAIN IN EXTREMITY [None]
  - VERTEBRAL FORAMINAL STENOSIS [None]
  - SCOLIOSIS [None]
  - GASTROOESOPHAGEAL REFLUX DISEASE [None]
  - NERVE ROOT COMPRESSION [None]
  - RADICULOPATHY [None]
  - SPINAL DISORDER [None]
  - ASTHMA [None]
  - GENITAL INFECTION FEMALE [None]
  - OSTEONECROSIS OF JAW [None]
  - ARTHRALGIA [None]
  - BRONCHITIS [None]
  - GASTROENTERITIS [None]
